FAERS Safety Report 8414521-8 (Version None)
Quarter: 2012Q2

REPORT INFORMATION
  Report Type: 
  Country: None (occurrence: None)
  Receive Date: 20120605
  Receipt Date: 20120530
  Transmission Date: 20120825
  Serious: Yes (Death, Hospitalization, Other)
  Sender: FDA-Public Use
  Company Number: US-PFIZER INC-2012047223

PATIENT
  Sex: Female

DRUGS (23)
  1. FOLIC ACID [Concomitant]
     Dosage: 1 MG, DAILY
  2. ASPIRIN [Concomitant]
     Dosage: 81 MG, 1X/DAY
  3. PRAVACHOL [Concomitant]
     Dosage: 20 MG, DAILY
  4. ALDACTONE [Concomitant]
     Dosage: 12.5 MG, DAILY (AT 1400 HOURS)
  5. MULTI-VITAMINS [Concomitant]
     Dosage: 1X/DAY
  6. PROTONIX [Concomitant]
     Dosage: 40 MG, DAILY
  7. TYVASO [Concomitant]
     Dosage: 1.74 MG, 4X/DAY
     Route: 055
  8. XANAX [Concomitant]
     Dosage: 0.5 MG, Q.H.S
  9. CELEXA [Concomitant]
     Dosage: 20 MG, 1X/DAY
  10. TREPROSTINIL SODIUM [Concomitant]
     Indication: PULMONARY HYPERTENSION
     Dosage: 1.74 MG, Q.I.D (4 PUFFS)
  11. XANAX [Concomitant]
     Dosage: 0.25 MG AT 8 AM AND NOONTIME
  12. DEMADEX [Concomitant]
     Dosage: 10 MG, DAILY
  13. VIAGRA [Suspect]
     Indication: PULMONARY HYPERTENSION
     Dosage: 20 MG, 3X/DAY
  14. AMBIEN [Concomitant]
     Dosage: 10 MG, Q.H.S.
  15. FERROUS SULFATE [Concomitant]
     Dosage: 325 MG, 3X/DAY (WITH MEALS)
  16. SYNTHROID [Concomitant]
     Dosage: 0.088 MG, DAILY
  17. MAGNESIUM OXIDE [Concomitant]
     Dosage: 400 MG, Q.A.M.
  18. DESYREL [Concomitant]
     Dosage: 25 MG, Q.H.S.
  19. IRON [Concomitant]
     Dosage: UNK
  20. REVATIO [Suspect]
     Indication: PULMONARY ARTERIAL HYPERTENSION
     Dosage: 20 MG, 3X/DAY
     Route: 048
     Dates: start: 20101201, end: 20120401
  21. CITRACAL + D [Concomitant]
     Dosage: 2 TABS DAILY
  22. POTASSIUM [Concomitant]
     Dosage: 10 MEQ, DAILY
  23. REMERON [Concomitant]
     Dosage: 15 MG, 2X/DAY (AT 8 AM AND 8 PM)

REACTIONS (14)
  - PNEUMONIA [None]
  - HEPATIC CIRRHOSIS [None]
  - ASCITES [None]
  - METABOLIC ACIDOSIS [None]
  - RESPIRATORY ARREST [None]
  - HYPONATRAEMIA [None]
  - PERITONITIS BACTERIAL [None]
  - RESPIRATORY DISTRESS [None]
  - CLOSTRIDIUM DIFFICILE COLITIS [None]
  - RENAL FAILURE CHRONIC [None]
  - CARDIAC ARREST [None]
  - HYPOTENSION [None]
  - ASTHENIA [None]
  - MEAN CELL VOLUME DECREASED [None]
